FAERS Safety Report 5201626-8 (Version None)
Quarter: 2006Q4

REPORT INFORMATION
  Report Type: 
  Country: None (occurrence: None)
  Receive Date: 20061006
  Receipt Date: 20060317
  Transmission Date: 20070319
  Serious: Yes (Hospitalization, Other)
  Sender: FDA-Public Use
  Company Number: 200611042BWH

PATIENT
  Age: 52 Year
  Sex: Male
  Weight: 93.441 kg

DRUGS (7)
  1. CIPRO XR [Suspect]
     Indication: INFECTION
     Dosage: 500 MG, ORAL
     Route: 048
     Dates: start: 20060210
  2. CIPRO XR [Suspect]
     Indication: NEPHROLITHIASIS
     Dosage: 500 MG, ORAL
     Route: 048
     Dates: start: 20060210
  3. VICODIN [Concomitant]
  4. AVANDAMET [Concomitant]
  5. LIPITOR [Concomitant]
  6. ZONEGRAN [Concomitant]
  7. DEPAKOTE [Concomitant]

REACTIONS (1)
  - CONVULSION [None]
